FAERS Safety Report 22191044 (Version 1)
Quarter: 2023Q2

REPORT INFORMATION
  Report Type: Spontaneous
  Country: MX (occurrence: MX)
  Receive Date: 20230410
  Receipt Date: 20230410
  Transmission Date: 20230722
  Serious: Yes (Hospitalization, Other)
  Sender: FDA-Public Use
  Company Number: MX-APOTEX-2023AP006553

PATIENT
  Age: 65 Year
  Sex: Male

DRUGS (4)
  1. BICALUTAMIDE [Suspect]
     Active Substance: BICALUTAMIDE
     Indication: Antiandrogen therapy
     Dosage: UNK
     Route: 065
  2. BICALUTAMIDE [Suspect]
     Active Substance: BICALUTAMIDE
     Indication: Prostate cancer
  3. GOSERELIN [Suspect]
     Active Substance: GOSERELIN
     Indication: Antiandrogen therapy
     Dosage: UNK
     Route: 065
  4. GOSERELIN [Suspect]
     Active Substance: GOSERELIN
     Indication: Prostate cancer

REACTIONS (3)
  - Squamous cell carcinoma [Recovering/Resolving]
  - Prostate cancer [Recovering/Resolving]
  - Urinary retention [Recovered/Resolved]
